FAERS Safety Report 13660313 (Version 1)
Quarter: 2017Q2

REPORT INFORMATION
  Report Type: Spontaneous
  Country: US (occurrence: US)
  Receive Date: 20170616
  Receipt Date: 20170616
  Transmission Date: 20170830
  Serious: Yes (Other)
  Sender: FDA-Public Use
  Company Number: US-PFIZER INC-2017258602

PATIENT
  Sex: Male

DRUGS (1)
  1. VIAGRA [Suspect]
     Active Substance: SILDENAFIL CITRATE
     Dosage: UNK

REACTIONS (7)
  - Mental disorder [Unknown]
  - Cognitive disorder [Unknown]
  - Malaise [Unknown]
  - Motor dysfunction [Unknown]
  - Spinal fracture [Unknown]
  - Agoraphobia [Unknown]
  - Erectile dysfunction [Unknown]
